FAERS Safety Report 4615745-8 (Version None)
Quarter: 2005Q1

REPORT INFORMATION
  Report Type: 
  Country: None (occurrence: None)
  Receive Date: 20050317
  Receipt Date: 20050308
  Transmission Date: 20050727
  Serious: Yes (Hospitalization, Other)
  Sender: FDA-Public Use
  Company Number: 0500002EN0010P

PATIENT
  Age: 4 Year
  Sex: Female

DRUGS (4)
  1. ADAGEN [Suspect]
     Indication: COMBINED IMMUNODEFICIENCY
     Dates: start: 20040101
  2. HYDROCORTISOINE [Concomitant]
  3. NAPROSYN [Concomitant]
  4. SYNTHROID [Concomitant]

REACTIONS (5)
  - ANTIBODY TEST POSITIVE [None]
  - HAEMOLYTIC ANAEMIA [None]
  - IMMUNE SYSTEM DISORDER [None]
  - LUNG DISORDER [None]
  - RESPIRATORY TRACT INFECTION [None]
